FAERS Safety Report 5076594-2 (Version None)
Quarter: 2006Q3

REPORT INFORMATION
  Report Type: 
  Country: None (occurrence: None)
  Receive Date: 20060725
  Receipt Date: 20060301
  Transmission Date: 20061208
  Serious: No
  Sender: FDA-Public Use
  Company Number: 200611356BWH

PATIENT
  Age: 39 Year
  Sex: Male
  Weight: 99.7913 kg

DRUGS (8)
  1. NEXAVAR [Suspect]
     Indication: METASTATIC RENAL CELL CARCINOMA
     Dosage: 400 MG, BID, ORAL
     Route: 048
     Dates: start: 20060203
  2. BACLOFEN [Concomitant]
  3. VALIUM [Concomitant]
  4. OMEPRAZOLE [Concomitant]
  5. BUPROTION HCL [Concomitant]
  6. OXYCODONE HCL [Concomitant]
  7. FENTANYL [Concomitant]
  8. MS CONTIN [Concomitant]

REACTIONS (13)
  - DIARRHOEA [None]
  - DYSPHONIA [None]
  - ENTERITIS [None]
  - HEADACHE [None]
  - HYPOAESTHESIA [None]
  - LETHARGY [None]
  - LIMB DISCOMFORT [None]
  - MUSCULAR WEAKNESS [None]
  - PAIN IN EXTREMITY [None]
  - PALMAR-PLANTAR ERYTHRODYSAESTHESIA SYNDROME [None]
  - PARAESTHESIA [None]
  - RASH [None]
  - SPINAL CORD COMPRESSION [None]
